FAERS Safety Report 25616500 (Version 1)
Quarter: 2025Q3

REPORT INFORMATION
  Report Type: Spontaneous
  Country: US (occurrence: US)
  Receive Date: 20250729
  Receipt Date: 20250729
  Transmission Date: 20251020
  Serious: Yes (Life-Threatening, Hospitalization)
  Sender: ACCORD
  Company Number: US-MLMSERVICE-20250711-PI575669-00101-1

PATIENT
  Age: 24 Year
  Sex: Male

DRUGS (9)
  1. CISPLATIN [Suspect]
     Active Substance: CISPLATIN
     Indication: Metastatic choriocarcinoma
  2. ETOPOSIDE [Suspect]
     Active Substance: ETOPOSIDE
     Indication: Metastatic choriocarcinoma
  3. BLEOMYCIN [Suspect]
     Active Substance: BLEOMYCIN SULFATE
     Indication: Metastatic choriocarcinoma
  4. BLEOMYCIN [Suspect]
     Active Substance: BLEOMYCIN SULFATE
     Indication: Metastases to liver
  5. BLEOMYCIN [Suspect]
     Active Substance: BLEOMYCIN SULFATE
     Indication: Metastases to lung
  6. ETOPOSIDE [Suspect]
     Active Substance: ETOPOSIDE
     Indication: Metastases to lung
  7. CISPLATIN [Suspect]
     Active Substance: CISPLATIN
     Indication: Metastases to lung
  8. ETOPOSIDE [Suspect]
     Active Substance: ETOPOSIDE
     Indication: Metastases to liver
  9. CISPLATIN [Suspect]
     Active Substance: CISPLATIN
     Indication: Metastases to liver

REACTIONS (6)
  - Tumour lysis syndrome [Recovering/Resolving]
  - Respiratory failure [Recovering/Resolving]
  - Choriocarcinoma [Recovering/Resolving]
  - Melaena [Recovering/Resolving]
  - Tumour haemorrhage [Recovering/Resolving]
  - Off label use [Unknown]
